FAERS Safety Report 10341269 (Version 10)
Quarter: 2015Q3

REPORT INFORMATION
  Report Type: Report from Study
  Country: US (occurrence: US)
  Receive Date: 20140725
  Receipt Date: 20150820
  Transmission Date: 20151125
  Serious: Yes (Hospitalization)
  Sender: FDA-Public Use
  Company Number: US-ROCHE-1428425

PATIENT
  Age: 73 Year
  Sex: Female
  Weight: 77 kg

DRUGS (8)
  1. 5-FLUOROURACIL [Suspect]
     Active Substance: FLUOROURACIL
     Indication: COLORECTAL CANCER METASTATIC
     Dosage: DATE OF LAST DOSE PRIOR TO SAE : 20/JUN/2014?3321.6 MG?29/JUN/2015: THERAPY INTERRUPTED INRESPONSE T
     Route: 042
     Dates: start: 20140516
  2. 5-FLUOROURACIL [Suspect]
     Active Substance: FLUOROURACIL
     Indication: RECTAL CANCER
     Dosage: DATE OF LAST DOSE PRIOR TO SAE : 20 JUN 2014?692 MG?11/JUL/2014: THERAPY INTERRUPTED INRESPONSE TO H
     Route: 040
     Dates: start: 20140516
  3. CALCIUM FOLINATE [Suspect]
     Active Substance: LEUCOVORIN CALCIUM
     Indication: COLORECTAL CANCER METASTATIC
     Dosage: DATE OF LAST DOSE PRIOR TO SAE : 20 JUN 2014 AT 692 MG?11/JUL/2014: THERAPY INTERRUPTED INRESPONSE T
     Route: 042
     Dates: start: 20140516
  4. BEVACIZUMAB [Suspect]
     Active Substance: BEVACIZUMAB
     Indication: COLORECTAL CANCER METASTATIC
     Dosage: DATE OF LAST DOSE PRIOR TO SAE AT 329 MG ON 20/JUN/2014?29/JUN/2015: THERAPY INTERRUPTED INRESPONSE
     Route: 042
     Dates: start: 20140516
  5. OXALIPLATIN. [Suspect]
     Active Substance: OXALIPLATIN
     Indication: COLORECTAL CANCER METASTATIC
     Dosage: DATE OF LAST DOSE PRIOR TO SAE : 06 JUN 2014?11/JUL/2014: THERAPY INTERRUPTED INRESPONSE TO HYPOKALE
     Route: 042
     Dates: start: 20140516
  6. OXALIPLATIN. [Suspect]
     Active Substance: OXALIPLATIN
     Indication: RECTAL CANCER
  7. BEVACIZUMAB [Suspect]
     Active Substance: BEVACIZUMAB
     Indication: RECTAL CANCER
  8. IRINOTECAN [Suspect]
     Active Substance: IRINOTECAN
     Indication: COLORECTAL CANCER METASTATIC
     Dosage: DATE OF LAST DOSE PRIOR TO SAE : 20 JUN 2014?311 MG?29/JUN/2015: THERAPY INTERRUPTED INRESPONSE TO N
     Route: 042
     Dates: start: 20140620

REACTIONS (4)
  - Hypokalaemia [Recovered/Resolved]
  - Hypertension [Recovering/Resolving]
  - Encephalopathy [Not Recovered/Not Resolved]
  - Neutropenic sepsis [Recovered/Resolved]

NARRATIVE: CASE EVENT DATE: 20140629
